FAERS Safety Report 9213675 (Version 1)
Quarter: 2013Q2

REPORT INFORMATION
  Report Type: Spontaneous
  Country: ES (occurrence: ES)
  Receive Date: 20130405
  Receipt Date: 20130405
  Transmission Date: 20140414
  Serious: Yes (Hospitalization)
  Sender: FDA-Public Use
  Company Number: ES-ASTELLAS-2013EU002948

PATIENT
  Age: 80 Year
  Sex: Male

DRUGS (1)
  1. VESICARE [Suspect]
     Dosage: 10 MG, UID/QD
     Route: 048
     Dates: start: 2013, end: 2013

REACTIONS (1)
  - Fluid imbalance [Unknown]
